FAERS Safety Report 4930487-7 (Version None)
Quarter: 2006Q1

REPORT INFORMATION
  Report Type: 
  Country: None (occurrence: None)
  Receive Date: 20060302
  Receipt Date: 20060201
  Transmission Date: 20060701
  Serious: Yes (Death, Hospitalization)
  Sender: FDA-Public Use
  Company Number: US-MERCK-0602USA00251

PATIENT
  Age: 68 Year
  Sex: Male
  Weight: 80 kg

DRUGS (6)
  1. VIOXX [Suspect]
     Indication: ARTHRALGIA
     Route: 048
     Dates: start: 20021201, end: 20040907
  2. VIOXX [Suspect]
     Route: 048
     Dates: start: 20021201, end: 20040907
  3. ATENOLOL [Concomitant]
     Route: 065
  4. ATENOLOL [Concomitant]
     Route: 048
  5. ZYBAN [Concomitant]
     Route: 048
  6. ZYBAN [Concomitant]
     Route: 048

REACTIONS (4)
  - CEREBROVASCULAR DISORDER [None]
  - CHEST PAIN [None]
  - CORONARY ARTERY DISEASE [None]
  - MYOCARDIAL INFARCTION [None]
